FAERS Safety Report 25349933 (Version 1)
Quarter: 2025Q2

REPORT INFORMATION
  Report Type: Report from Study
  Country: US (occurrence: US)
  Receive Date: 20250523
  Receipt Date: 20250523
  Transmission Date: 20250716
  Serious: Yes (Other)
  Sender: ALEXION PHARMACEUTICALS
  Company Number: US-AstraZeneca-CH-00873931A

PATIENT
  Age: 79 Year

DRUGS (2)
  1. ACALABRUTINIB [Suspect]
     Active Substance: ACALABRUTINIB
     Indication: B-cell small lymphocytic lymphoma
     Dosage: 100 MILLIGRAM, Q12H
  2. DULOXETINE [Concomitant]
     Active Substance: DULOXETINE
     Route: 065

REACTIONS (1)
  - Neuropathy peripheral [Unknown]
